FAERS Safety Report 18848427 (Version 1)
Quarter: 2021Q1

REPORT INFORMATION
  Report Type: Spontaneous
  Country: JP (occurrence: JP)
  Receive Date: 20210204
  Receipt Date: 20210204
  Transmission Date: 20210419
  Serious: Yes (Other)
  Sender: FDA-Public Use
  Company Number: JP-PFIZER INC-2021073232

PATIENT
  Age: 9 Decade
  Sex: Female

DRUGS (2)
  1. PREGABALIN OD 25MG PFIZER [Suspect]
     Active Substance: PREGABALIN
     Indication: NEURALGIA
     Dosage: 50 (UNIT NOT PROVIDED)
     Route: 048
     Dates: start: 20201221, end: 20210121
  2. LOXOPROFEN [Concomitant]
     Active Substance: LOXOPROFEN
     Indication: BACK PAIN
     Dosage: UNK
     Route: 048

REACTIONS (2)
  - Renal impairment [Unknown]
  - Urine abnormality [Unknown]

NARRATIVE: CASE EVENT DATE: 20210121
